FAERS Safety Report 22733914 (Version 2)
Quarter: 2024Q2

REPORT INFORMATION
  Report Type: Report from Study
  Country: CA (occurrence: CA)
  Receive Date: 20230721
  Receipt Date: 20240422
  Transmission Date: 20240716
  Serious: No
  Sender: FDA-Public Use
  Company Number: CA-SANDOZ-SDZ2023CA000872

PATIENT
  Sex: Female
  Weight: 35 kg

DRUGS (1)
  1. ERELZI [Suspect]
     Active Substance: ETANERCEPT-SZZS
     Indication: Product used for unknown indication
     Dosage: 50 MG
     Route: 065

REACTIONS (5)
  - Nausea [Unknown]
  - Feeding disorder [Unknown]
  - Weight decreased [Unknown]
  - Injection site pain [Unknown]
  - Drug ineffective [Unknown]
